FAERS Safety Report 26034307 (Version 1)
Quarter: 2025Q4

REPORT INFORMATION
  Report Type: Spontaneous
  Country: JP (occurrence: JP)
  Receive Date: 20251112
  Receipt Date: 20251112
  Transmission Date: 20260118
  Serious: Yes (Other)
  Sender: RANBAXY
  Company Number: JP-SUN PHARMACEUTICAL INDUSTRIES LTD-2025RR-535893

PATIENT
  Age: 80 Year
  Sex: Female

DRUGS (3)
  1. LORAZEPAM [Suspect]
     Active Substance: LORAZEPAM
     Indication: Anxiety disorder
     Dosage: 1 MILLIGRAM, DAILY
     Route: 048
  2. BROTIZOLAM [Suspect]
     Active Substance: BROTIZOLAM
     Indication: Anxiety disorder
     Dosage: 0.25 MILLIGRAM, DAILY
     Route: 048
  3. HERBALS [Suspect]
     Active Substance: HERBALS
     Indication: Anxiety disorder
     Dosage: 5 GRAM, EVENING AND BEFORE SLEEP
     Route: 048

REACTIONS (7)
  - Treatment noncompliance [Unknown]
  - Withdrawal syndrome [Unknown]
  - Intentional product use issue [Unknown]
  - Somnolence [Unknown]
  - Dizziness [Unknown]
  - Insomnia [Unknown]
  - Drug abuse [Unknown]
